FAERS Safety Report 24024528 (Version 2)
Quarter: 2024Q3

REPORT INFORMATION
  Report Type: Report from Study
  Country: US (occurrence: US)
  Receive Date: 20240628
  Receipt Date: 20240830
  Transmission Date: 20241016
  Serious: Yes (Death, Hospitalization, Other)
  Sender: ACADIA PHARMACEUTICALS
  Company Number: US-ACADIA PHARMACEUTICALS INC.-ACA-2024-PIM-002722

PATIENT
  Sex: Male

DRUGS (17)
  1. NUPLAZID [Suspect]
     Active Substance: PIMAVANSERIN TARTRATE
     Indication: Parkinson^s disease
     Dosage: 20 MILLIGRAM, QD
     Route: 048
     Dates: start: 202310, end: 20240605
  2. RECLAST [Concomitant]
     Active Substance: ZOLEDRONIC ACID
  3. ECOTRIN [Concomitant]
     Active Substance: ASPIRIN
  4. STOOL SOFTENER (DOCUSATE) [Concomitant]
     Active Substance: DOCUSATE
  5. MINERALS\VITAMINS [Concomitant]
     Active Substance: MINERALS\VITAMINS
  6. CALCIUM [Concomitant]
     Active Substance: CALCIUM
  7. D1000 [Concomitant]
  8. VITAMINS [Concomitant]
     Active Substance: VITAMINS
  9. XARELTO [Concomitant]
     Active Substance: RIVAROXABAN
  10. TYLENOL [Concomitant]
     Active Substance: ACETAMINOPHEN
  11. MAGNESIUM ELEMENTAL [Concomitant]
  12. BIFIDOBACTERIUM ANIMALIS LACTIS [Concomitant]
     Active Substance: BIFIDOBACTERIUM ANIMALIS LACTIS
  13. DULOXETINE HYDROCHLORIDE [Concomitant]
     Active Substance: DULOXETINE HYDROCHLORIDE
  14. LEVETIRACETAM [Concomitant]
     Active Substance: LEVETIRACETAM
  15. ENBREL [Concomitant]
     Active Substance: BENZYL ALCOHOL\ETANERCEPT
  16. CALCIUM [Concomitant]
     Active Substance: CALCIUM
  17. VITAMIN D3 [Concomitant]
     Active Substance: CHOLECALCIFEROL

REACTIONS (4)
  - Pneumonia [Recovered/Resolved]
  - Hip fracture [Recovered/Resolved]
  - Fall [Unknown]
  - Incorrect dose administered [Not Recovered/Not Resolved]
